FAERS Safety Report 4392952-3 (Version None)
Quarter: 2004Q3

REPORT INFORMATION
  Report Type: 
  Country: None (occurrence: None)
  Receive Date: 20040702
  Receipt Date: 20040625
  Transmission Date: 20050211
  Serious: Yes (Life-Threatening, Hospitalization)
  Sender: FDA-Public Use
  Company Number: 2004AP02113

PATIENT
  Age: 72 Year
  Sex: Female

DRUGS (12)
  1. IRESSA [Suspect]
     Indication: NON-SMALL CELL LUNG CANCER
     Dosage: 250 MG DAILY PO
     Route: 048
     Dates: start: 20040202, end: 20040206
  2. IRESSA [Suspect]
     Indication: NON-SMALL CELL LUNG CANCER
     Dosage: 250 MG DAILY PO
     Route: 048
     Dates: start: 20040212, end: 20040225
  3. IRESSA [Suspect]
     Indication: NON-SMALL CELL LUNG CANCER
     Dosage: 250 MG DAILY PO
     Route: 048
     Dates: start: 20040405, end: 20040416
  4. IRESSA [Suspect]
     Indication: NON-SMALL CELL LUNG CANCER
     Dosage: 250 MG DAILY PO
     Route: 048
     Dates: start: 20040421, end: 20040421
  5. ONON [Concomitant]
  6. THEO-DUR [Concomitant]
  7. UFT [Concomitant]
  8. MS-TWICELON [Concomitant]
  9. LASIX [Concomitant]
  10. ALDACTONE [Concomitant]
  11. NOVAMIN [Concomitant]
  12. PREDONINE [Concomitant]

REACTIONS (3)
  - CONVULSION [None]
  - DIARRHOEA [None]
  - DYSPNOEA [None]
